FAERS Safety Report 25171886 (Version 1)
Quarter: 2025Q2

REPORT INFORMATION
  Report Type: Spontaneous
  Country: DE (occurrence: DE)
  Receive Date: 20250408
  Receipt Date: 20250408
  Transmission Date: 20250716
  Serious: Yes (Other)
  Sender: ALKEM
  Company Number: DE-ALKEM LABORATORIES LIMITED-DE-ALKEM-2025-01335

PATIENT

DRUGS (7)
  1. ARIPIPRAZOLE [Suspect]
     Active Substance: ARIPIPRAZOLE
     Indication: Bipolar disorder
     Route: 065
  2. LITHIUM [Concomitant]
     Active Substance: LITHIUM
     Indication: Bipolar disorder
     Route: 065
  3. LITHIUM [Concomitant]
     Active Substance: LITHIUM
     Route: 065
  4. OLANZAPINE [Concomitant]
     Active Substance: OLANZAPINE
     Indication: Bipolar disorder
     Route: 065
  5. OLANZAPINE [Concomitant]
     Active Substance: OLANZAPINE
     Route: 065
  6. QUETIAPINE [Concomitant]
     Active Substance: QUETIAPINE
     Indication: Product used for unknown indication
     Route: 065
  7. QUETIAPINE [Concomitant]
     Active Substance: QUETIAPINE
     Route: 065

REACTIONS (1)
  - Mania [Unknown]
